FAERS Safety Report 9629405 (Version 1)
Quarter: 2013Q4

REPORT INFORMATION
  Report Type: Spontaneous
  Country: US (occurrence: US)
  Receive Date: 20131017
  Receipt Date: 20131017
  Transmission Date: 20140711
  Serious: No
  Sender: FDA-Public Use
  Company Number: US-ASTRAZENECA-2013SE61362

PATIENT
  Age: 80 Year
  Sex: Female
  Weight: 66.7 kg

DRUGS (8)
  1. CRESTOR [Suspect]
     Indication: BLOOD CHOLESTEROL
     Route: 048
     Dates: end: 20130727
  2. OMEPRAZOLE [Suspect]
     Indication: GASTROOESOPHAGEAL REFLUX DISEASE
     Route: 048
  3. HCTZ [Suspect]
     Route: 048
  4. SYNTHROID [Concomitant]
     Indication: HYPOTHYROIDISM
     Dosage: 50 MCG DAILY
     Route: 048
  5. ASPIRIN [Concomitant]
     Indication: CEREBROVASCULAR ACCIDENT
     Route: 048
  6. CALCIUM [Concomitant]
     Indication: BONE DENSITY ABNORMAL
     Route: 048
  7. VITAMINS [Concomitant]
     Indication: GENERAL PHYSICAL CONDITION
     Route: 048
  8. PREMARIN [Concomitant]
     Indication: HORMONE REPLACEMENT THERAPY
     Route: 048

REACTIONS (5)
  - Gastrooesophageal reflux disease [Unknown]
  - Tinea pedis [Unknown]
  - Dry eye [Unknown]
  - Hypersensitivity [Unknown]
  - Drug dose omission [Not Recovered/Not Resolved]
